FAERS Safety Report 8494581-9 (Version None)
Quarter: 2012Q3

REPORT INFORMATION
  Report Type: 
  Country: None (occurrence: None)
  Receive Date: 20120709
  Receipt Date: 20120703
  Transmission Date: 20120928
  Serious: Yes (Death)
  Sender: FDA-Public Use
  Company Number: JP-GENZYME-THYM-1002651

PATIENT
  Age: 22 Year
  Sex: Female
  Weight: 38 kg

DRUGS (3)
  1. THYMOGLOBULIN [Suspect]
     Indication: BONE MARROW CONDITIONING REGIMEN
     Dosage: 2.5 MG/KG, QD
     Route: 042
     Dates: start: 20110523, end: 20110524
  2. FLUDARA [Suspect]
     Indication: BONE MARROW CONDITIONING REGIMEN
     Dosage: UNK
     Route: 065
  3. GANCICLOVIR [Concomitant]
     Indication: LYMPHADENOPATHY
     Dosage: UNK
     Route: 065
     Dates: start: 20110721

REACTIONS (2)
  - LYMPHADENOPATHY [None]
  - POST TRANSPLANT LYMPHOPROLIFERATIVE DISORDER [None]
